FAERS Safety Report 7754547-0 (Version None)
Quarter: 2011Q3

REPORT INFORMATION
  Report Type: 
  Country: None (occurrence: None)
  Receive Date: 20110915
  Receipt Date: 20110909
  Transmission Date: 20111222
  Serious: Yes (Hospitalization)
  Sender: FDA-Public Use
  Company Number: US-ABBOTT-11P-163-0854393-00

PATIENT
  Sex: Male
  Weight: 113.5 kg

DRUGS (2)
  1. HUMIRA [Suspect]
     Indication: RHEUMATOID ARTHRITIS
  2. MANY MEDICATIONS [Concomitant]
     Indication: HEART RATE IRREGULAR

REACTIONS (2)
  - WALKING AID USER [None]
  - NERVE COMPRESSION [None]
